FAERS Safety Report 14037613 (Version 19)
Quarter: 2018Q2

REPORT INFORMATION
  Report Type: Spontaneous
  Country: US (occurrence: US)
  Receive Date: 20171004
  Receipt Date: 20180507
  Transmission Date: 20180711
  Serious: Yes (Other)
  Sender: FDA-Public Use
  Company Number: US-PFIZER INC-2017413958

PATIENT
  Age: 87 Year
  Sex: Male
  Weight: 64 kg

DRUGS (12)
  1. SUTENT [Suspect]
     Active Substance: SUNITINIB MALATE
     Dosage: 50 MG, CYCLIC (28 DAYS ON/14 DAYS OFF)
     Dates: start: 20171002, end: 20171019
  2. SUTENT [Suspect]
     Active Substance: SUNITINIB MALATE
     Indication: RENAL CANCER STAGE IV
     Dosage: 50 MG, CYCLIC (28 DAYS ON/14 DAYS OFF)
     Route: 048
     Dates: start: 20170919, end: 20170927
  3. SUTENT [Suspect]
     Active Substance: SUNITINIB MALATE
     Dosage: 50 MG, CYCLIC (4 WEEKS ON)
     Route: 048
  4. LASIX [Concomitant]
     Active Substance: FUROSEMIDE
     Dosage: 40 MG, ONCE A DAY
     Route: 048
     Dates: start: 201707
  5. SUTENT [Suspect]
     Active Substance: SUNITINIB MALATE
     Dosage: 25 MG, CYCLIC (X 2 WEEKS ONE WEEK OFF)
     Route: 048
  6. LASIX [Concomitant]
     Active Substance: FUROSEMIDE
     Indication: POLYURIA
     Dosage: 40 MG, UNK
  7. SUTENT [Suspect]
     Active Substance: SUNITINIB MALATE
     Dosage: 25 MG, CYCLIC (28 DAYS ON/14 DAYS OFF)
     Dates: start: 20171129, end: 20171225
  8. ALDACTONE [Concomitant]
     Active Substance: SPIRONOLACTONE
     Indication: POLYURIA
     Dosage: 25 MG, ONCE A DAY
     Route: 048
     Dates: start: 201707
  9. ELIQUIS [Concomitant]
     Active Substance: APIXABAN
     Indication: CEREBROVASCULAR ACCIDENT
     Dosage: 2.5 MG, TWICE A DAY
     Route: 048
     Dates: start: 201707
  10. SUTENT [Suspect]
     Active Substance: SUNITINIB MALATE
     Dosage: 25 MG, CYCLIC, (2 WEEKS ON/1 WEEK OFF)
     Dates: start: 20180122
  11. METOPROLOL. [Concomitant]
     Active Substance: METOPROLOL
     Indication: ARRHYTHMIA
     Dosage: 100 MG, ONCE A DAY
     Route: 048
     Dates: start: 201707
  12. LASIX [Concomitant]
     Active Substance: FUROSEMIDE
     Dosage: 20 MG, UNK

REACTIONS (35)
  - Stomatitis [Recovering/Resolving]
  - Skin disorder [Unknown]
  - Contusion [Recovered/Resolved]
  - Skin irritation [Recovered/Resolved]
  - Pruritus [Recovering/Resolving]
  - Renal impairment [Unknown]
  - Neoplasm progression [Unknown]
  - Food poisoning [Unknown]
  - Weight decreased [Recovering/Resolving]
  - Lip dry [Unknown]
  - Pruritus genital [Recovering/Resolving]
  - Insomnia [Unknown]
  - Decreased appetite [Recovered/Resolved]
  - Urine output decreased [Unknown]
  - Lip injury [Recovering/Resolving]
  - Skin exfoliation [Unknown]
  - Faeces soft [Recovering/Resolving]
  - Oral pain [Recovered/Resolved]
  - Musculoskeletal pain [Unknown]
  - Fatigue [Unknown]
  - Asthenia [Unknown]
  - Vomiting [Recovered/Resolved]
  - Dehydration [Unknown]
  - Glossodynia [Unknown]
  - Anorectal discomfort [Unknown]
  - Skin fissures [Recovered/Resolved]
  - Impaired healing [Recovered/Resolved]
  - Red blood cell count decreased [Not Recovered/Not Resolved]
  - Frequent bowel movements [Recovering/Resolving]
  - Haemoglobin increased [Unknown]
  - Rash [Not Recovered/Not Resolved]
  - Pain of skin [Unknown]
  - Wound [Recovered/Resolved]
  - Chapped lips [Unknown]
  - Pruritus [Recovered/Resolved]

NARRATIVE: CASE EVENT DATE: 2017
